FAERS Safety Report 21966084 (Version 5)
Quarter: 2024Q2

REPORT INFORMATION
  Report Type: Report from Study
  Country: IE (occurrence: IE)
  Receive Date: 20230208
  Receipt Date: 20240619
  Transmission Date: 20240716
  Serious: Yes (Hospitalization, Other)
  Sender: FDA-Public Use
  Company Number: IE-TAKEDA-2023TUS008720

PATIENT
  Age: 7 Year
  Sex: Female
  Weight: 23.15 kg

DRUGS (20)
  1. TEDUGLUTIDE [Suspect]
     Active Substance: TEDUGLUTIDE
     Indication: Short-bowel syndrome
     Dosage: 1.25 MILLIGRAM, QD
     Route: 058
     Dates: start: 20230116
  2. TEDUGLUTIDE [Suspect]
     Active Substance: TEDUGLUTIDE
     Indication: Short-bowel syndrome
     Dosage: 1.25 MILLIGRAM, QD
     Route: 058
     Dates: start: 20230116
  3. TEDUGLUTIDE [Suspect]
     Active Substance: TEDUGLUTIDE
     Indication: Short-bowel syndrome
     Dosage: 1.25 MILLIGRAM, QD
     Route: 058
     Dates: start: 20230116
  4. TEDUGLUTIDE [Suspect]
     Active Substance: TEDUGLUTIDE
     Indication: Short-bowel syndrome
     Dosage: 1.25 MILLIGRAM, QD
     Route: 058
     Dates: start: 20230116
  5. TEDUGLUTIDE [Suspect]
     Active Substance: TEDUGLUTIDE
     Dosage: 108 MILLIGRAM, QD
     Route: 058
     Dates: start: 20230116
  6. TEDUGLUTIDE [Suspect]
     Active Substance: TEDUGLUTIDE
     Dosage: 108 MILLIGRAM, QD
     Route: 058
     Dates: start: 20230116
  7. TEDUGLUTIDE [Suspect]
     Active Substance: TEDUGLUTIDE
     Dosage: 108 MILLIGRAM, QD
     Route: 058
     Dates: start: 20230116
  8. TEDUGLUTIDE [Suspect]
     Active Substance: TEDUGLUTIDE
     Dosage: 108 MILLIGRAM, QD
     Route: 058
     Dates: start: 20230116
  9. TEDUGLUTIDE [Suspect]
     Active Substance: TEDUGLUTIDE
     Dosage: 1.14 MILLIGRAM, QD
     Route: 058
     Dates: start: 20230116
  10. TEDUGLUTIDE [Suspect]
     Active Substance: TEDUGLUTIDE
     Dosage: 1.14 MILLIGRAM, QD
     Route: 058
     Dates: start: 20230116
  11. TEDUGLUTIDE [Suspect]
     Active Substance: TEDUGLUTIDE
     Dosage: 1.14 MILLIGRAM, QD
     Route: 058
     Dates: start: 20230116
  12. TEDUGLUTIDE [Suspect]
     Active Substance: TEDUGLUTIDE
     Dosage: 1.14 MILLIGRAM, QD
     Route: 058
     Dates: start: 20230116
  13. TEDUGLUTIDE [Suspect]
     Active Substance: TEDUGLUTIDE
     Dosage: 1.15 MILLIGRAM, QD
     Route: 058
     Dates: start: 20230116
  14. TEDUGLUTIDE [Suspect]
     Active Substance: TEDUGLUTIDE
     Dosage: 1.15 MILLIGRAM, QD
     Route: 058
     Dates: start: 20230116
  15. TEDUGLUTIDE [Suspect]
     Active Substance: TEDUGLUTIDE
     Dosage: 1.15 MILLIGRAM, QD
     Route: 058
     Dates: start: 20230116
  16. TEDUGLUTIDE [Suspect]
     Active Substance: TEDUGLUTIDE
     Dosage: 1.15 MILLIGRAM, QD
     Route: 058
     Dates: start: 20230116
  17. TEDUGLUTIDE [Suspect]
     Active Substance: TEDUGLUTIDE
     Dosage: 1.15 MILLIGRAM, QD
     Route: 058
     Dates: start: 20230116
  18. TEDUGLUTIDE [Suspect]
     Active Substance: TEDUGLUTIDE
     Dosage: 1.15 MILLIGRAM, QD
     Route: 058
     Dates: start: 20230116
  19. TEDUGLUTIDE [Suspect]
     Active Substance: TEDUGLUTIDE
     Dosage: 1.15 MILLIGRAM, QD
     Route: 058
     Dates: start: 20230116
  20. TEDUGLUTIDE [Suspect]
     Active Substance: TEDUGLUTIDE
     Dosage: 1.15 MILLIGRAM, QD
     Route: 058
     Dates: start: 20230116

REACTIONS (13)
  - Complication associated with device [Unknown]
  - Vascular device infection [Not Recovered/Not Resolved]
  - Poor venous access [Not Recovered/Not Resolved]
  - Diarrhoea [Not Recovered/Not Resolved]
  - Energy increased [Not Recovered/Not Resolved]
  - Weight increased [Not Recovered/Not Resolved]
  - Blood potassium decreased [Not Recovered/Not Resolved]
  - Fasting [Not Recovered/Not Resolved]
  - Abnormal faeces [Not Recovered/Not Resolved]
  - Pyrexia [Not Recovered/Not Resolved]
  - Insomnia [Not Recovered/Not Resolved]
  - Product dose omission issue [Not Recovered/Not Resolved]
  - Drug effect less than expected [Unknown]

NARRATIVE: CASE EVENT DATE: 20230119
